FAERS Safety Report 7012796-3 (Version None)
Quarter: 2010Q3

REPORT INFORMATION
  Report Type: 
  Country: None (occurrence: None)
  Receive Date: 20100924
  Receipt Date: 20100916
  Transmission Date: 20110219
  Serious: Yes (Hospitalization)
  Sender: FDA-Public Use
  Company Number: B0538388A

PATIENT
  Sex: Female
  Weight: 53 kg

DRUGS (4)
  1. LAPATINIB [Suspect]
     Dosage: 1250MG PER DAY
     Route: 048
     Dates: start: 20080808
  2. CAPECITABINE [Suspect]
     Dosage: 3000MGM2 PER DAY
     Route: 048
     Dates: start: 20080808
  3. ACETAMINOPHEN [Concomitant]
     Indication: CHEST PAIN
     Dosage: 500MG FOUR TIMES PER DAY
     Dates: start: 20080922
  4. TRAMADOL [Concomitant]
     Indication: CHEST PAIN
     Dosage: 100MG FOUR TIMES PER DAY
     Dates: start: 20080923

REACTIONS (3)
  - COUGH [None]
  - DYSPNOEA [None]
  - PLEURAL EFFUSION [None]
